FAERS Safety Report 21741811 (Version 1)
Quarter: 2022Q4

REPORT INFORMATION
  Report Type: Spontaneous
  Country: FR (occurrence: FR)
  Receive Date: 20221216
  Receipt Date: 20221216
  Transmission Date: 20230113
  Serious: Yes (Other)
  Sender: FDA-Public Use
  Company Number: FR-TEVA-2022-FR-2831983

PATIENT
  Age: 62 Year
  Sex: Male
  Weight: 80 kg

DRUGS (3)
  1. AZILECT [Suspect]
     Active Substance: RASAGILINE MESYLATE
     Indication: Parkinson^s disease
     Dosage: 1 MILLIGRAM DAILY; FORM STRENGTH: 1MILLIGRAM
     Route: 065
     Dates: start: 202209
  2. AMITRIPTYLINE HYDROCHLORIDE [Concomitant]
     Active Substance: AMITRIPTYLINE HYDROCHLORIDE
     Indication: Sleep disorder
     Dosage: FORM STRENGTH: 40 MG/ML, 10 DROPS IN THE EVENING
     Route: 048
  3. L-DOPA 125 [Concomitant]
     Indication: Product used for unknown indication
     Dosage: 5 DOSAGE FORMS DAILY; 5 DF DAILY SINCE 2020
     Dates: start: 2020

REACTIONS (4)
  - Hallucination, olfactory [Recovered/Resolved]
  - Sleep disorder [Not Recovered/Not Resolved]
  - Contraindicated product prescribed [Unknown]
  - Contraindicated product administered [Unknown]

NARRATIVE: CASE EVENT DATE: 20220101
